FAERS Safety Report 16066700 (Version 1)
Quarter: 2019Q2

REPORT INFORMATION
  Report Type: Spontaneous
  Country: US (occurrence: US)
  Receive Date: 20190313
  Receipt Date: 20190313
  Transmission Date: 20190711
  Serious: Yes (Other)
  Sender: FDA-Public Use
  Company Number: None

PATIENT
  Age: 71 Year
  Sex: Female

DRUGS (1)
  1. LIDODERM [Suspect]
     Active Substance: LIDOCAINE
     Indication: NEURALGIA
     Dosage: ?          OTHER FREQUENCY:Q12H, WITH 12H OFF;?
     Route: 062
     Dates: start: 20190310, end: 20190312

REACTIONS (4)
  - Rash [None]
  - Product odour abnormal [None]
  - Product quality issue [None]
  - Inadequate analgesia [None]

NARRATIVE: CASE EVENT DATE: 20190312
